FAERS Safety Report 9475288 (Version 1)
Quarter: 2013Q3

REPORT INFORMATION
  Report Type: Spontaneous
  Country: US (occurrence: US)
  Receive Date: 20130826
  Receipt Date: 20130826
  Transmission Date: 20140515
  Serious: No
  Sender: FDA-Public Use
  Company Number: US-009507513-1308USA009244

PATIENT
  Age: 81 Year
  Sex: Female

DRUGS (9)
  1. ASMANEX TWISTHALER [Suspect]
     Indication: ASTHMA
     Dosage: 1 INHALATION TWICE DAILY
     Route: 055
     Dates: start: 20100127
  2. BENICAR [Concomitant]
  3. PEPCID [Concomitant]
     Route: 048
  4. MULTAQ [Concomitant]
  5. WARFARIN SODIUM [Concomitant]
     Route: 048
  6. HYDROCHLOROTHIAZIDE [Concomitant]
     Route: 048
  7. ATORVASTATIN [Concomitant]
  8. VOLTAREN EMULGEL [Concomitant]
  9. TRICOR (FENOFIBRATE) [Concomitant]

REACTIONS (1)
  - Asthma [Unknown]
